FAERS Safety Report 8267272-7 (Version None)
Quarter: 2012Q2

REPORT INFORMATION
  Report Type: 
  Country: None (occurrence: None)
  Receive Date: 20120409
  Receipt Date: 20120330
  Transmission Date: 20120825
  Serious: Yes (Death, Life-Threatening, Hospitalization)
  Sender: FDA-Public Use
  Company Number: US-JNJFOC-20110611913

PATIENT
  Sex: Female
  Weight: 73.35 kg

DRUGS (41)
  1. LOMOTIL [Concomitant]
     Indication: DIARRHOEA
     Route: 048
     Dates: start: 20100222
  2. SEROQUEL [Concomitant]
     Dates: start: 20110311
  3. DARUNAVIR ETHANOLATE [Suspect]
     Route: 048
     Dates: start: 20110329, end: 20110531
  4. METHADONE HCL [Concomitant]
     Dates: start: 20110805
  5. IBUPROFEN [Concomitant]
     Route: 048
     Dates: start: 20070611
  6. BACTRIM [Concomitant]
     Route: 048
     Dates: start: 20090918
  7. PROMETHAZINE W/ CODEINE [Concomitant]
     Indication: UPPER RESPIRATORY TRACT INFECTION
  8. DIOVAN HCT [Concomitant]
     Route: 048
     Dates: start: 20110805
  9. PROMETHAZINE W/ CODEINE [Concomitant]
     Indication: COUGH
  10. TRUVADA [Concomitant]
     Indication: HIV INFECTION
     Route: 048
     Dates: start: 20090922
  11. TRUVADA [Concomitant]
     Route: 048
     Dates: start: 20110329, end: 20110531
  12. RALTEGRAVIR [Concomitant]
     Indication: HIV INFECTION
     Route: 048
     Dates: start: 20110329, end: 20110531
  13. POTASSIUM CHLORIDE [Concomitant]
     Route: 048
     Dates: start: 20091123
  14. WESTCORT [Concomitant]
     Route: 061
     Dates: start: 20110617
  15. PERCOCET [Concomitant]
     Dates: start: 20101110
  16. VALSARTAN [Concomitant]
  17. DIOVAN HCT [Concomitant]
     Route: 048
     Dates: start: 20090922
  18. ADVAIR DISKUS 100/50 [Concomitant]
     Route: 055
     Dates: start: 20070820
  19. LAC-HYDRIN [Concomitant]
     Indication: DRY SKIN
     Route: 061
     Dates: start: 20110617
  20. ALLEGRA [Concomitant]
     Route: 048
     Dates: start: 20110722
  21. DARUNAVIR ETHANOLATE [Suspect]
     Indication: HIV INFECTION
     Route: 048
     Dates: start: 20110816, end: 20110904
  22. ETRAVIRINE [Suspect]
     Indication: HIV INFECTION
     Route: 048
     Dates: start: 20110329, end: 20110531
  23. RITONAVIR [Suspect]
     Route: 048
     Dates: start: 20110816, end: 20110904
  24. RALTEGRAVIR [Concomitant]
     Route: 048
     Dates: start: 20110816, end: 20110904
  25. METHADONE HCL [Concomitant]
     Dates: start: 20090818
  26. NORVASC [Concomitant]
     Route: 048
     Dates: start: 20100921
  27. METFORMIN HCL [Concomitant]
     Route: 048
     Dates: start: 20110502
  28. ABACAVIR [Suspect]
     Indication: HIV INFECTION
     Dates: start: 20110816
  29. RITONAVIR [Suspect]
     Indication: HIV INFECTION
     Route: 048
     Dates: start: 20110329, end: 20110531
  30. STROVITE FORTE [Concomitant]
     Route: 048
     Dates: start: 20030821
  31. ADVAIR DISKUS 100/50 [Concomitant]
     Route: 055
     Dates: start: 20091002
  32. AMBIEN [Concomitant]
     Route: 048
     Dates: start: 20091020
  33. VALTREX [Concomitant]
     Route: 048
     Dates: start: 20091019
  34. LAMIVUDINE [Concomitant]
     Indication: HIV INFECTION
     Route: 048
     Dates: start: 20110816
  35. PROVENTIL [Concomitant]
     Indication: DYSPNOEA
     Route: 055
     Dates: start: 20040224
  36. LIPITOR [Concomitant]
     Route: 048
     Dates: start: 20110826
  37. ZITHROMAX [Concomitant]
     Dates: start: 20101123
  38. ULTRACET [Concomitant]
  39. STROVITE [Concomitant]
     Route: 048
     Dates: start: 20060707
  40. LOTRISONE [Concomitant]
     Dates: start: 20110722
  41. MULTI-VITAMINS [Concomitant]

REACTIONS (5)
  - RASH [None]
  - RENAL FAILURE ACUTE [None]
  - SEPTIC SHOCK [None]
  - HEPATIC FAILURE [None]
  - UROSEPSIS [None]
